FAERS Safety Report 4753635-0 (Version None)
Quarter: 2005Q3

REPORT INFORMATION
  Report Type: 
  Country: None (occurrence: None)
  Receive Date: 20050826
  Receipt Date: 20050809
  Transmission Date: 20060218
  Serious: Yes (Other)
  Sender: FDA-Public Use
  Company Number: 200517220GDDC

PATIENT
  Age: 76 Year
  Sex: Male

DRUGS (1)
  1. MIGLUCAN [Suspect]
     Indication: DIABETES MELLITUS NON-INSULIN-DEPENDENT

REACTIONS (1)
  - MYELODYSPLASTIC SYNDROME [None]
